FAERS Safety Report 21931289 (Version 2)
Quarter: 2025Q2

REPORT INFORMATION
  Report Type: Spontaneous
  Country: US (occurrence: US)
  Receive Date: 20230131
  Receipt Date: 20250528
  Transmission Date: 20250716
  Serious: No
  Sender: CIPLA
  Company Number: US-CIPLA LTD.-2022US06717

PATIENT

DRUGS (1)
  1. ALBUTEROL [Suspect]
     Active Substance: ALBUTEROL
     Indication: Product used for unknown indication
     Route: 065
     Dates: start: 2022, end: 20221110

REACTIONS (4)
  - Incorrect dose administered by device [Unknown]
  - Device delivery system issue [Unknown]
  - Product cleaning inadequate [Unknown]
  - Device issue [Unknown]

NARRATIVE: CASE EVENT DATE: 20220101
